FAERS Safety Report 12624420 (Version 2)
Quarter: 2016Q3

REPORT INFORMATION
  Report Type: Report from Study
  Country: CA (occurrence: CA)
  Receive Date: 20160805
  Receipt Date: 20160930
  Transmission Date: 20161109
  Serious: Yes (Hospitalization, Other)
  Sender: FDA-Public Use
  Company Number: CA-BRISTOL-MYERS SQUIBB COMPANY-BMS-2016-008995

PATIENT
  Age: 15 Year
  Sex: Female

DRUGS (4)
  1. NAPROXEN. [Concomitant]
     Active Substance: NAPROXEN
     Indication: PRODUCT USED FOR UNKNOWN INDICATION
     Route: 065
  2. ABATACEPT [Suspect]
     Active Substance: ABATACEPT
     Indication: JUVENILE IDIOPATHIC ARTHRITIS
     Dosage: 500 MG, Q4WK
     Route: 042
     Dates: start: 20150213
  3. METHOTREXATE. [Concomitant]
     Active Substance: METHOTREXATE
     Indication: PRODUCT USED FOR UNKNOWN INDICATION
     Route: 065
  4. FOLIC ACID. [Concomitant]
     Active Substance: FOLIC ACID
     Indication: PRODUCT USED FOR UNKNOWN INDICATION
     Route: 065

REACTIONS (15)
  - Osteomyelitis [Unknown]
  - Headache [Unknown]
  - Blood pressure decreased [Unknown]
  - Vomiting [Unknown]
  - Hyperthermia [Unknown]
  - Arthritis [Unknown]
  - Dizziness [Unknown]
  - Urinary tract infection [Unknown]
  - Nasal congestion [Unknown]
  - Rales [Unknown]
  - Pyelonephritis [Unknown]
  - Influenza [Unknown]
  - Productive cough [Unknown]
  - Osteitis [Unknown]
  - Nausea [Unknown]

NARRATIVE: CASE EVENT DATE: 201601
